FAERS Safety Report 15940493 (Version 1)
Quarter: 2019Q1

REPORT INFORMATION
  Report Type: Spontaneous
  Country: MM (occurrence: MM)
  Receive Date: 20190208
  Receipt Date: 20190208
  Transmission Date: 20190417
  Serious: Yes (Disabling)
  Sender: FDA-Public Use
  Company Number: MM-009507513-1901MMR011873

PATIENT
  Age: 25 Year
  Sex: Female
  Weight: 37 kg

DRUGS (8)
  1. BEDAQUILINE [Suspect]
     Active Substance: BEDAQUILINE
     Indication: TUBERCULOSIS
     Dosage: 200 MILLIGRAM, TIW
     Route: 065
     Dates: start: 201803
  2. DELAMANID [Suspect]
     Active Substance: DELAMANID
     Indication: TUBERCULOSIS
     Dosage: 100 MILLIGRAM, BID
     Route: 048
     Dates: start: 20180405
  3. BEDAQUILINE [Suspect]
     Active Substance: BEDAQUILINE
     Dosage: 400 MG QD FOR TWO WEEKS
     Dates: start: 20180314
  4. PYRIDOXINE [Concomitant]
     Active Substance: PYRIDOXINE
     Indication: PROPHYLAXIS
     Dosage: UNK
     Dates: start: 20180314
  5. PYRAZINAMIDE. [Suspect]
     Active Substance: PYRAZINAMIDE
     Indication: TUBERCULOSIS
     Dosage: 1000 MILLIGRAM, QD
     Route: 065
     Dates: start: 20180314
  6. IMIPENEM AND CILASTATIN [Suspect]
     Active Substance: CILASTATIN SODIUM\IMIPENEM
     Indication: TUBERCULOSIS
     Dosage: 1 GRAM, BID
     Dates: start: 20180622
  7. AMOXICILLIN (+) CLAVULANATE POTASSIUM [Suspect]
     Active Substance: AMOXICILLIN\CLAVULANATE POTASSIUM
     Indication: TUBERCULOSIS
     Dosage: 625 MILLIGRAM, BID
     Route: 065
     Dates: start: 20180622
  8. LINEZOLID. [Suspect]
     Active Substance: LINEZOLID
     Indication: TUBERCULOSIS
     Dosage: 600 MILLIGRAM, QD
     Route: 065
     Dates: start: 20180314

REACTIONS (6)
  - Hypoacusis [Unknown]
  - Blood creatinine decreased [Unknown]
  - Blood potassium decreased [Unknown]
  - Platelet count increased [Unknown]
  - Vertigo [Unknown]
  - Tinnitus [Unknown]

NARRATIVE: CASE EVENT DATE: 201812
